FAERS Safety Report 5131237-4 (Version None)
Quarter: 2006Q4

REPORT INFORMATION
  Report Type: 
  Country: None (occurrence: None)
  Receive Date: 20061017
  Receipt Date: 20061017
  Transmission Date: 20070319
  Serious: Yes (Hospitalization)
  Sender: FDA-Public Use
  Company Number: None

PATIENT
  Age: 65 Year
  Sex: Male
  Weight: 75 kg

DRUGS (1)
  1. VENOFER [Suspect]
     Indication: IRON DEFICIENCY ANAEMIA
     Dosage: 1000MG ONCE IV DRIP
     Route: 041
     Dates: start: 20061013, end: 20061013

REACTIONS (7)
  - HYPERHIDROSIS [None]
  - INCORRECT DOSE ADMINISTERED [None]
  - INFUSION RELATED REACTION [None]
  - MEDICATION ERROR [None]
  - NAUSEA [None]
  - PARAESTHESIA [None]
  - VOMITING [None]
